FAERS Safety Report 24924624 (Version 1)
Quarter: 2025Q1

REPORT INFORMATION
  Report Type: Report from Study
  Country: US (occurrence: US)
  Receive Date: 20250204
  Receipt Date: 20250204
  Transmission Date: 20250409
  Serious: No
  Sender: EXELIXIS
  Company Number: US-EXELIXIS-CABO-24075288

PATIENT
  Age: 81 Year
  Sex: Male

DRUGS (8)
  1. CABOMETYX [Suspect]
     Active Substance: CABOZANTINIB S-MALATE
     Indication: Renal cell carcinoma
     Dosage: 40 MG, QD
     Dates: start: 20240215
  2. OPDIVO [Suspect]
     Active Substance: NIVOLUMAB
     Indication: Renal cell carcinoma
     Dosage: UNK, Q4WEEKS
  3. ALLOPURINOL [Concomitant]
     Active Substance: ALLOPURINOL
  4. ATORVASTATIN [Concomitant]
     Active Substance: ATORVASTATIN
  5. BENAZEPRIL [Concomitant]
     Active Substance: BENAZEPRIL HYDROCHLORIDE
  6. AMLODIPINE [Concomitant]
     Active Substance: AMLODIPINE BESYLATE
  7. VITAMINS [Concomitant]
     Active Substance: VITAMINS
  8. CALCIUM [Concomitant]
     Active Substance: CALCIUM

REACTIONS (5)
  - Hepatic enzyme increased [Not Recovered/Not Resolved]
  - Gastrooesophageal reflux disease [Recovering/Resolving]
  - Pain in jaw [Not Recovered/Not Resolved]
  - Ophthalmic migraine [Not Recovered/Not Resolved]
  - Vitreous floaters [Not Recovered/Not Resolved]

NARRATIVE: CASE EVENT DATE: 20240301
